FAERS Safety Report 8328757-8 (Version None)
Quarter: 2012Q2

REPORT INFORMATION
  Report Type: 
  Country: None (occurrence: None)
  Receive Date: 20120502
  Receipt Date: 20120424
  Transmission Date: 20120825
  Serious: Yes (Hospitalization)
  Sender: FDA-Public Use
  Company Number: US-US-EMD SERONO, INC.-7128549

PATIENT
  Sex: Female

DRUGS (3)
  1. REBIF [Suspect]
     Dates: start: 20080101
  2. REBIF [Suspect]
     Route: 058
     Dates: start: 20120416
  3. REBIF [Suspect]
     Indication: PRODUCT USED FOR UNKNOWN INDICATION
     Dates: end: 20070901

REACTIONS (3)
  - CEREBROVASCULAR ACCIDENT [None]
  - ANAEMIA [None]
  - MYALGIA [None]
